FAERS Safety Report 20115493 (Version 2)
Quarter: 2022Q1

REPORT INFORMATION
  Report Type: Report from Study
  Country: US (occurrence: US)
  Receive Date: 20211126
  Receipt Date: 20220125
  Transmission Date: 20220423
  Serious: Yes (Hospitalization, Other)
  Sender: FDA-Public Use
  Company Number: US-ABBVIE-21K-163-4176011-00

PATIENT
  Age: 64 Year
  Sex: Male
  Weight: 77.180 kg

DRUGS (1)
  1. HUMIRA [Suspect]
     Active Substance: ADALIMUMAB
     Indication: Psoriasis
     Dosage: CITRATE FREE
     Route: 058

REACTIONS (2)
  - Sepsis [Recovered/Resolved]
  - Rotator cuff syndrome [Unknown]

NARRATIVE: CASE EVENT DATE: 20210927
